FAERS Safety Report 6388051-1 (Version None)
Quarter: 2009Q3

REPORT INFORMATION
  Report Type: 
  Country: None (occurrence: None)
  Receive Date: 20090930
  Receipt Date: 20090915
  Transmission Date: 20100115
  Serious: Yes (Other)
  Sender: FDA-Public Use
  Company Number: 8052484

PATIENT
  Age: 14 Year
  Sex: Male

DRUGS (1)
  1. KEPPRA [Suspect]
     Indication: EPILEPSY
     Dosage: 4 G /D
     Dates: start: 20060101

REACTIONS (2)
  - HYPOPHOSPHATAEMIA [None]
  - RENAL TUBULAR DISORDER [None]
